FAERS Safety Report 7905827-7 (Version None)
Quarter: 2011Q4

REPORT INFORMATION
  Report Type: 
  Country: None (occurrence: None)
  Receive Date: 20111108
  Receipt Date: 20111026
  Transmission Date: 20120403
  Serious: Yes (Hospitalization, Other)
  Sender: FDA-Public Use
  Company Number: 2011PL000152

PATIENT
  Sex: Male

DRUGS (1)
  1. PROLEUKIN [Suspect]
     Indication: RENAL CELL CARCINOMA
     Dosage: 5 DL

REACTIONS (2)
  - TACHYARRHYTHMIA [None]
  - SICK SINUS SYNDROME [None]
